FAERS Safety Report 26202872 (Version 1)
Quarter: 2025Q4

REPORT INFORMATION
  Report Type: Spontaneous
  Country: EU (occurrence: EU)
  Receive Date: 20251226
  Receipt Date: 20251226
  Transmission Date: 20260118
  Serious: Yes (Hospitalization, Other)
  Sender: SANOFI AVENTIS
  Company Number: None

PATIENT
  Age: 68 Year
  Sex: Female
  Weight: 75 kg

DRUGS (26)
  1. DOCETAXEL [Suspect]
     Active Substance: DOCETAXEL
     Indication: Chemotherapy
     Dosage: 130 MG, (|| DOSE UNIT FREQUENCY: 130 MGMILLIGRAMS || DOSE PER DOSE: 130 MGMILLIGRAMS), INTRAVENOUS I
     Route: 040
     Dates: start: 20130701
  2. DOCETAXEL [Suspect]
     Active Substance: DOCETAXEL
     Dosage: 130 MG, ((|| DOSE UNIT FREQUENCY: 130 MGMILLIGRAMS || DOSE PER DOSE: 130 MGMILLIGRAMS))
     Route: 040
     Dates: start: 20130701
  3. METFORMIN HYDROCHLORIDE [Suspect]
     Active Substance: METFORMIN HYDROCHLORIDE
     Indication: Diabetes mellitus
     Dosage: 850 MG, QD (1359A) (|| DOSE UNIT FREQUENCY: 850 MG-MILLIGRAMS || DOSE PER DOSE: 850 MG-MILLIGRAMS ||
     Route: 065
     Dates: start: 201211, end: 201310
  4. FOSFOMYCIN SODIUM [Suspect]
     Active Substance: FOSFOMYCIN SODIUM
     Indication: Product used for unknown indication
     Dosage: 1 G, QD (1599A) (|| DOSE UNIT FREQUENCY: 1 G-GRAMS || DOSE PER DOSE: 1 G-GRAMS || NO. OF SOCKETS PER
     Route: 065
     Dates: start: 20130704, end: 20130705
  5. CIPROFLOXACIN HYDROCHLORIDE [Suspect]
     Active Substance: CIPROFLOXACIN HYDROCHLORIDE
     Indication: Product used for unknown indication
     Dosage: 1000 MG, QD (1000 MG, QD, 500 MG, Q12H (2049A) (|| DOSE UNIT FREQUENCY: 500 MG-MILLIGRAMS || DOSE PE
     Route: 065
     Dates: start: 20130709, end: 20130710
  6. CIPROFLOXACIN HYDROCHLORIDE [Suspect]
     Active Substance: CIPROFLOXACIN HYDROCHLORIDE
     Dosage: 500 MG (500 MG, (DOSE UNIT FREQUENCY: 500 MG-MILLIGRAMS || DOSE PER ADMINISTRATION: 500 MG MILLIGRAM
     Route: 065
     Dates: start: 20130712
  7. CIPROFLOXACIN HYDROCHLORIDE [Suspect]
     Active Substance: CIPROFLOXACIN HYDROCHLORIDE
     Dosage: 1000 MG, QD (1000 MG, QD (500 MG, Q12H (2049A) (|| DOSE UNIT FREQUENCY: 500 MG-MILLIGRAMS || DOSE PE
     Route: 065
     Dates: start: 20130709, end: 20130710
  8. CARBOPLATIN [Suspect]
     Active Substance: CARBOPLATIN
     Indication: Chemotherapy
     Dosage: 840 MG, QD (840 MG, QD (2323A) (|| DOSE UNIT FREQUENCY: 840 MG-MILLIGRAMS || DOSE PER DOSE: 840 MG-M
     Route: 065
     Dates: start: 20130701, end: 20130729
  9. CARBOPLATIN [Suspect]
     Active Substance: CARBOPLATIN
     Dosage: 600 MG (600 MG (2323A) (|| DOSE UNIT FREQUENCY: 600 MG-MILLIGRAMS || DOSE PER DOSE: 600 MG-MILLIGRAM
     Route: 065
     Dates: start: 20130819, end: 20130819
  10. CARBOPLATIN [Suspect]
     Active Substance: CARBOPLATIN
     Dosage: UNK
     Route: 065
  11. DOMPERIDONE [Concomitant]
     Active Substance: DOMPERIDONE
     Indication: Product used for unknown indication
     Dosage: UNK (20/MG/ML) (865A)
     Route: 065
     Dates: start: 20130805
  12. AMOXICILLIN\CLAVULANIC ACID [Concomitant]
     Active Substance: AMOXICILLIN\CLAVULANIC ACID
     Indication: Product used for unknown indication
     Dosage: 37.5 MG, QD
     Route: 065
     Dates: start: 20130703, end: 20130704
  13. FERROUS SULFATE ANHYDROUS [Concomitant]
     Active Substance: FERROUS SULFATE ANHYDROUS
     Indication: Product used for unknown indication
     Dosage: UNK (1742SU)
     Route: 065
     Dates: start: 20130729, end: 20130730
  14. NEUPOGEN [Concomitant]
     Active Substance: FILGRASTIM
     Indication: Product used for unknown indication
     Dosage: UNK (6000/U/ML)
     Route: 065
     Dates: start: 20130805, end: 20130807
  15. NEUPOGEN [Concomitant]
     Active Substance: FILGRASTIM
     Dosage: UNK (150000/U/ML)
     Route: 065
     Dates: start: 20130819, end: 20130820
  16. NEUPOGEN [Concomitant]
     Active Substance: FILGRASTIM
     Dosage: UNK (6000/MIU/L)
     Route: 065
     Dates: start: 20130820, end: 20130824
  17. PANTOPRAZOLE [Concomitant]
     Active Substance: PANTOPRAZOLE
     Indication: Product used for unknown indication
     Dosage: 500 MG (7275A) (|| DOSE UNIT FREQUENCY: 500 MG-MILLIGRAMS || DOSE PER DOSE: 500 MG-MILLIGRAMS)
     Route: 065
     Dates: start: 201211
  18. ACETAMINOPHEN [Concomitant]
     Active Substance: ACETAMINOPHEN
     Indication: Product used for unknown indication
     Dosage: 500 MG (12A) (|| DOSE PER DOSE: 500 MG-MILLIGRAMS)
     Route: 065
     Dates: start: 201211
  19. RANITIDINE [Concomitant]
     Active Substance: RANITIDINE
     Indication: Diabetes mellitus
     Dosage: 150 MG (2A) (|| DOSE UNIT FREQUENCY: 150 MG-MILLIGRAMS || DOSE PER DOSE: 150 MG-MILLIGRAMS)
     Route: 042
     Dates: start: 201211
  20. RANITIDINE [Concomitant]
     Active Substance: RANITIDINE
     Dosage: 850 MG
     Route: 042
     Dates: start: 201211, end: 201310
  21. RANITIDINE [Concomitant]
     Active Substance: RANITIDINE
     Dosage: 150 MG (2A) (|| DOSE UNIT FREQUENCY: 150 MG-MILLIGRAMS || DOSE PER DOSE: 150 MG-MILLIGRAMS) (INTRAVE
     Route: 065
     Dates: start: 201211
  22. RANITIDINE [Concomitant]
     Active Substance: RANITIDINE
     Dosage: 150 MG (2A) (|| DOSE UNIT FREQUENCY: 150 MG-MILLIGRAMS || DOSE PER DOSE: 150 MG-MILLIGRAMS)
     Route: 042
     Dates: start: 201211
  23. SIMVASTATIN [Concomitant]
     Active Substance: SIMVASTATIN
     Indication: Product used for unknown indication
     Dosage: 20 MG (1023A) (|| DOSE UNIT FREQUENCY: 20 MG-MILLIGRAMS || DOSE PER DOSE: 20 MG-MILLIGRAMS)
     Route: 065
     Dates: start: 201211
  24. TRASTUZUMAB [Concomitant]
     Active Substance: TRASTUZUMAB
     Indication: Breast cancer
     Dosage: 5400MG, Q3W, (1168A) (|| DOSE UNIT FREQUENCY: 600 MG-MILLIGRAMS || DOSE PER DOSE: 600 MG-MILLIGRAMS
     Route: 058
     Dates: start: 20130701, end: 20130722
  25. TRASTUZUMAB [Concomitant]
     Active Substance: TRASTUZUMAB
     Dosage: 5400MG, Q3W, (|| DOSIS UNIDAD FRECUENCIA: 600 MG-MILIGRAMOS || DOSIS POR TOMA: 600 MG-MILIGRAMOS ||
     Route: 058
     Dates: start: 20130729, end: 20131001
  26. TRASTUZUMAB [Concomitant]
     Active Substance: TRASTUZUMAB
     Dosage: 5400 MG, Q3W, (|| DOSIS UNIDAD FRECUENCIA: 600 MG-MILIGRAMOS || DOSIS POR TOMA: 600 MG-MILIGRAMOS ||
     Route: 058
     Dates: start: 20131022

REACTIONS (3)
  - Blood creatinine decreased [Unknown]
  - Diarrhoea [Recovered/Resolved]
  - Acute kidney injury [Recovered/Resolved]

NARRATIVE: CASE EVENT DATE: 20130706
